FAERS Safety Report 13983194 (Version 1)
Quarter: 2017Q3

REPORT INFORMATION
  Report Type: Spontaneous
  Country: US (occurrence: US)
  Receive Date: 20170918
  Receipt Date: 20170918
  Transmission Date: 20171128
  Serious: Yes (Life-Threatening, Hospitalization)
  Sender: FDA-Public Use
  Company Number: None

PATIENT
  Age: 78 Year
  Sex: Female
  Weight: 73.8 kg

DRUGS (8)
  1. LANTUS [Concomitant]
     Active Substance: INSULIN GLARGINE
  2. SHARK CARTILIGE [Concomitant]
  3. GENERIC LIPITOR [Concomitant]
     Active Substance: ATORVASTATIN CALCIUM
  4. BUDESONIDE. [Suspect]
     Active Substance: BUDESONIDE
     Indication: COLITIS MICROSCOPIC
     Route: 048
     Dates: start: 20170914, end: 20170914
  5. HUMALOG [Concomitant]
     Active Substance: INSULIN LISPRO
  6. METFORMIN [Concomitant]
     Active Substance: METFORMIN HYDROCHLORIDE
  7. FLAXSEED [Concomitant]
     Active Substance: FLAX SEED
  8. CALCIUM [Concomitant]
     Active Substance: CALCIUM

REACTIONS (3)
  - Electrocardiogram abnormal [None]
  - Pericarditis [None]
  - Atrial fibrillation [None]

NARRATIVE: CASE EVENT DATE: 20170714
